FAERS Safety Report 24025597 (Version 4)
Quarter: 2024Q3

REPORT INFORMATION
  Report Type: Report from Study
  Country: LT (occurrence: LT)
  Receive Date: 20240628
  Receipt Date: 20240710
  Transmission Date: 20241017
  Serious: No
  Sender: ROCHE
  Company Number: LT-ROCHE-3345788

PATIENT
  Age: 66 Year
  Sex: Male
  Weight: 83.0 kg

DRUGS (12)
  1. ALECTINIB [Suspect]
     Active Substance: ALECTINIB
     Indication: Lung cancer metastatic
     Route: 048
     Dates: start: 20230203
  2. NEBIVOLOL [Concomitant]
     Active Substance: NEBIVOLOL
     Route: 048
     Dates: start: 2014
  3. INDAPAMIDE\PERINDOPRIL [Concomitant]
     Active Substance: INDAPAMIDE\PERINDOPRIL
     Route: 048
     Dates: start: 2019
  4. AMLODIPINE [Concomitant]
     Active Substance: AMLODIPINE BESYLATE
  5. MELDONIUM [Concomitant]
     Active Substance: MELDONIUM
     Route: 048
     Dates: start: 20221117
  6. POTASSIUM CHLORIDE [Concomitant]
     Active Substance: POTASSIUM CHLORIDE
     Indication: Hypocalcaemia
     Route: 048
     Dates: start: 20230301, end: 20230314
  7. POTASSIUM CHLORIDE [Concomitant]
     Active Substance: POTASSIUM CHLORIDE
     Indication: Hypokalaemia
     Route: 048
     Dates: start: 20230426
  8. BILASTINE [Concomitant]
     Active Substance: BILASTINE
     Indication: Urticaria
     Route: 048
     Dates: start: 20230207, end: 20230211
  9. DEXAMETHASONE [Concomitant]
     Active Substance: DEXAMETHASONE
     Route: 048
     Dates: start: 20230717
  10. CARBOPLATIN [Concomitant]
     Active Substance: CARBOPLATIN
     Dates: start: 20231227
  11. ETOPOSIDE [Concomitant]
     Active Substance: ETOPOSIDE
     Dates: start: 20231227
  12. ATEZOLIZUMAB [Concomitant]
     Active Substance: ATEZOLIZUMAB
     Route: 065
     Dates: start: 20231227

REACTIONS (1)
  - Hypomagnesaemia [Recovering/Resolving]

NARRATIVE: CASE EVENT DATE: 20230203
